FAERS Safety Report 11588441 (Version 2)
Quarter: 2015Q4

REPORT INFORMATION
  Report Type: Spontaneous
  Country: CN (occurrence: CN)
  Receive Date: 20151002
  Receipt Date: 20151211
  Transmission Date: 20160304
  Serious: Yes (Death, Hospitalization, Other)
  Sender: FDA-Public Use
  Company Number: CN-BRISTOL-MYERS SQUIBB COMPANY-BMS-2015-064510

PATIENT
  Age: 84 Year
  Sex: Male

DRUGS (1)
  1. ERBITUX [Suspect]
     Active Substance: CETUXIMAB
     Indication: COLORECTAL CANCER METASTATIC
     Dosage: 600 MG, Q2WK
     Route: 041
     Dates: start: 20150729

REACTIONS (2)
  - Haematochezia [Fatal]
  - Lung infection [Fatal]

NARRATIVE: CASE EVENT DATE: 20150916
